FAERS Safety Report 16279293 (Version 1)
Quarter: 2019Q2

REPORT INFORMATION
  Report Type: Spontaneous
  Country: US (occurrence: US)
  Receive Date: 20190507
  Receipt Date: 20190507
  Transmission Date: 20190711
  Serious: Yes (Other)
  Sender: FDA-Public Use
  Company Number: US-PCCINC-2019-PEL-000121

PATIENT
  Age: 70 Year
  Sex: Male
  Weight: 80 kg

DRUGS (15)
  1. PROPOFOL. [Suspect]
     Active Substance: PROPOFOL
     Dosage: 100 TO 160 ?G/KG/MIN
     Route: 065
  2. CEFAZOLIN [Suspect]
     Active Substance: CEFAZOLIN
     Indication: PRODUCT USED FOR UNKNOWN INDICATION
     Dosage: 2,000 MG
     Route: 065
  3. REMIFENTANIL [Suspect]
     Active Substance: REMIFENTANIL
     Indication: PRODUCT USED FOR UNKNOWN INDICATION
     Dosage: INFUSION TITRATED TO 0.1 TO 0.2 ?G/KG/MIN
     Route: 065
  4. VANCOMYCIN [Suspect]
     Active Substance: VANCOMYCIN
     Indication: PRODUCT USED FOR UNKNOWN INDICATION
     Dosage: 1,250-MG INFUSION
     Route: 065
  5. PROPOFOL. [Suspect]
     Active Substance: PROPOFOL
     Indication: PRODUCT USED FOR UNKNOWN INDICATION
     Dosage: 150 MILLIGRAM
     Route: 065
  6. TRANEXAMIC ACID C [Suspect]
     Active Substance: TRANEXAMIC ACID
     Indication: PRODUCT USED FOR UNKNOWN INDICATION
     Dosage: BOLUS AND INFUSION FOR A TOTAL DOSE OF 1,520 MG
     Route: 065
  7. SEVOFLURANE, USP [Suspect]
     Active Substance: SEVOFLURANE
     Dosage: 2.8%
  8. SEVOFLURANE, USP [Suspect]
     Active Substance: SEVOFLURANE
     Dosage: 0.6% TO 0.7%
  9. FENTANYL. [Suspect]
     Active Substance: FENTANYL
     Indication: PRODUCT USED FOR UNKNOWN INDICATION
     Dosage: 100 MICROGRAM
     Route: 065
  10. LIDOCAINE. [Suspect]
     Active Substance: LIDOCAINE
     Route: 065
  11. SUCCINYLCHOLINE                    /00057701/ [Suspect]
     Active Substance: SUCCINYLCHOLINE
     Route: 065
  12. MIDAZOLAM [Suspect]
     Active Substance: MIDAZOLAM HYDROCHLORIDE
     Indication: PRODUCT USED FOR UNKNOWN INDICATION
     Dosage: 5 MG
     Route: 065
  13. KETAMINE [Suspect]
     Active Substance: KETAMINE
     Indication: PRODUCT USED FOR UNKNOWN INDICATION
     Dosage: 100 MG
     Route: 065
  14. SEVOFLURANE, USP [Suspect]
     Active Substance: SEVOFLURANE
     Indication: ANAESTHESIA
     Dosage: 1.2% TO 1.4%
  15. DEXAMETHASONE. [Suspect]
     Active Substance: DEXAMETHASONE
     Indication: PRODUCT USED FOR UNKNOWN INDICATION
     Dosage: 10 MICROGRAM
     Route: 065

REACTIONS (9)
  - Optic ischaemic neuropathy [Recovering/Resolving]
  - Hypotension [Unknown]
  - Asthenia [Unknown]
  - Haemorrhage [Unknown]
  - Sensory loss [Unknown]
  - Metabolic acidosis [Unknown]
  - Blindness [Recovering/Resolving]
  - Vision blurred [Recovering/Resolving]
  - Depressed level of consciousness [Unknown]
